FAERS Safety Report 6578693-2 (Version None)
Quarter: 2010Q1

REPORT INFORMATION
  Report Type: 
  Country: None (occurrence: None)
  Receive Date: 20100202
  Receipt Date: 20100119
  Transmission Date: 20100710
  Serious: Yes (Life-Threatening, Hospitalization)
  Sender: FDA-Public Use
  Company Number: 1000011559

PATIENT
  Age: 60 Year
  Sex: Female

DRUGS (6)
  1. CITALOPRAM HYDROBROMIDE [Suspect]
     Dosage: 40 MG, ORAL
     Route: 048
     Dates: start: 20080506
  2. LYOGEN [Suspect]
     Dosage: 5 MG, ORAL
     Route: 048
     Dates: start: 20080506
  3. QUILONUM [Suspect]
     Dosage: 675 MG, ORAL
     Route: 048
     Dates: start: 20080506
  4. LEPONEX [Suspect]
     Dosage: 300 MG, ORAL
     Route: 048
     Dates: start: 20080621
  5. SEROQUEL [Suspect]
     Dosage: 300 MG, ORAL
     Route: 048
     Dates: start: 20080506, end: 20080620
  6. LEVOTHYROXINE SODIUM [Concomitant]

REACTIONS (4)
  - ASPIRATION [None]
  - CHOKING [None]
  - DRUG INTERACTION [None]
  - RESPIRATORY ARREST [None]
